FAERS Safety Report 8361037-3 (Version None)
Quarter: 2012Q2

REPORT INFORMATION
  Report Type: 
  Country: None (occurrence: None)
  Receive Date: 20120515
  Receipt Date: 20120502
  Transmission Date: 20120825
  Serious: Yes (Death, Other)
  Sender: FDA-Public Use
  Company Number: BR-COVIDIEN/TYCO HEALTHCARE/MALLINCKRODT-T201201721

PATIENT
  Sex: Female

DRUGS (1)
  1. EXALGO [Suspect]
     Indication: CANCER PAIN
     Dosage: 16 MG, UNK
     Route: 048
     Dates: start: 20100101

REACTIONS (3)
  - NEOPLASM MALIGNANT [None]
  - CONSTIPATION [None]
  - MEDICATION RESIDUE [None]
